FAERS Safety Report 24382633 (Version 4)
Quarter: 2024Q4

REPORT INFORMATION
  Report Type: Report from Study
  Country: CN (occurrence: CN)
  Receive Date: 20241001
  Receipt Date: 20241230
  Transmission Date: 20250115
  Serious: Yes (Hospitalization, Other)
  Sender: ROCHE
  Company Number: CN-ROCHE-10000005433

PATIENT
  Age: 56 Year
  Sex: Male
  Weight: 55 kg

DRUGS (81)
  1. POLIVY [Suspect]
     Active Substance: POLATUZUMAB VEDOTIN-PIIQ
     Indication: Diffuse large B-cell lymphoma
     Dosage: FREQUENCY: ONCE
     Route: 042
     Dates: start: 20240528, end: 20240528
  2. POLIVY [Suspect]
     Active Substance: POLATUZUMAB VEDOTIN-PIIQ
     Dosage: FREQUENCY: ONCE
     Route: 042
     Dates: start: 20240731, end: 20240731
  3. PIRARUBICIN HYDROCHLORIDE [Suspect]
     Active Substance: PIRARUBICIN HYDROCHLORIDE
     Indication: Diffuse large B-cell lymphoma
     Route: 042
     Dates: start: 20240604, end: 20240604
  4. PIRARUBICIN HYDROCHLORIDE [Suspect]
     Active Substance: PIRARUBICIN HYDROCHLORIDE
     Route: 042
     Dates: start: 20240629, end: 20240701
  5. PIRARUBICIN HYDROCHLORIDE [Suspect]
     Active Substance: PIRARUBICIN HYDROCHLORIDE
     Route: 042
     Dates: start: 20240801, end: 20240803
  6. PIRARUBICIN HYDROCHLORIDE [Suspect]
     Active Substance: PIRARUBICIN HYDROCHLORIDE
     Route: 042
     Dates: start: 20240605, end: 20240605
  7. RITUXIMAB [Suspect]
     Active Substance: RITUXIMAB
     Indication: Diffuse large B-cell lymphoma
     Route: 042
     Dates: start: 20240529, end: 20240529
  8. RITUXIMAB [Suspect]
     Active Substance: RITUXIMAB
     Route: 042
     Dates: start: 20240627, end: 20240627
  9. RITUXIMAB [Suspect]
     Active Substance: RITUXIMAB
     Route: 042
     Dates: start: 20240731, end: 20240731
  10. CYCLOPHOSPHAMIDE [Suspect]
     Active Substance: CYCLOPHOSPHAMIDE
     Indication: Diffuse large B-cell lymphoma
     Route: 042
     Dates: start: 20240531, end: 20240531
  11. CYCLOPHOSPHAMIDE [Suspect]
     Active Substance: CYCLOPHOSPHAMIDE
     Route: 042
     Dates: start: 20240602, end: 20240602
  12. CYCLOPHOSPHAMIDE [Suspect]
     Active Substance: CYCLOPHOSPHAMIDE
     Route: 042
     Dates: start: 20240801, end: 20240801
  13. VINCRISTINE [Suspect]
     Active Substance: VINCRISTINE
     Indication: Diffuse large B-cell lymphoma
     Route: 042
     Dates: start: 20240531, end: 20240531
  14. CILASTATIN SODIUM\IMIPENEM [Suspect]
     Active Substance: CILASTATIN SODIUM\IMIPENEM
     Indication: Diffuse large B-cell lymphoma
     Route: 042
  15. CILASTATIN SODIUM\IMIPENEM [Suspect]
     Active Substance: CILASTATIN SODIUM\IMIPENEM
     Route: 042
     Dates: start: 20240608, end: 20240617
  16. CILASTATIN SODIUM\IMIPENEM [Suspect]
     Active Substance: CILASTATIN SODIUM\IMIPENEM
     Route: 042
     Dates: start: 20240911, end: 20240915
  17. MOXIFLOXACIN HYDROCHLORIDE [Suspect]
     Active Substance: MOXIFLOXACIN HYDROCHLORIDE
     Indication: Diffuse large B-cell lymphoma
     Route: 042
  18. MOXIFLOXACIN HYDROCHLORIDE [Suspect]
     Active Substance: MOXIFLOXACIN HYDROCHLORIDE
     Route: 042
     Dates: start: 20240819, end: 20240821
  19. MOXIFLOXACIN HYDROCHLORIDE [Suspect]
     Active Substance: MOXIFLOXACIN HYDROCHLORIDE
     Route: 042
     Dates: start: 20240821, end: 20240827
  20. MOXIFLOXACIN HYDROCHLORIDE [Suspect]
     Active Substance: MOXIFLOXACIN HYDROCHLORIDE
     Route: 042
     Dates: start: 20240909, end: 20240913
  21. PREDNISONE [Suspect]
     Active Substance: PREDNISONE
     Indication: Diffuse large B-cell lymphoma
     Route: 042
  22. PREDNISONE [Suspect]
     Active Substance: PREDNISONE
     Route: 042
     Dates: start: 20240801, end: 20240806
  23. Riboflavin sodium phosphate for injection [Concomitant]
     Route: 042
     Dates: start: 20240511, end: 20240516
  24. Riboflavin sodium phosphate for injection [Concomitant]
     Route: 042
     Dates: start: 20240511, end: 20240516
  25. Riboflavin sodium phosphate for injection [Concomitant]
     Route: 042
     Dates: start: 20240511, end: 20240516
  26. Monoammonium glycyrrhizinate cysteine sodium chloride inj [Concomitant]
     Route: 042
     Dates: start: 20240511, end: 20240514
  27. Monoammonium glycyrrhizinate cysteine sodium chloride inj [Concomitant]
     Route: 042
     Dates: start: 20240511, end: 20240514
  28. Monoammonium glycyrrhizinate cysteine sodium chloride inj [Concomitant]
     Route: 042
     Dates: start: 20240511, end: 20240514
  29. AMINO ACIDS, SOURCE UNSPECIFIED [Concomitant]
     Active Substance: AMINO ACIDS, SOURCE UNSPECIFIED
     Route: 042
     Dates: start: 20240512, end: 20240513
  30. AMINO ACIDS, SOURCE UNSPECIFIED [Concomitant]
     Active Substance: AMINO ACIDS, SOURCE UNSPECIFIED
     Route: 042
     Dates: start: 20240513, end: 20240516
  31. AMINO ACIDS, SOURCE UNSPECIFIED [Concomitant]
     Active Substance: AMINO ACIDS, SOURCE UNSPECIFIED
  32. Live Bacillus licheniformis granules [Concomitant]
     Route: 048
     Dates: start: 20240513, end: 20240514
  33. Live Bacillus licheniformis granules [Concomitant]
     Route: 048
     Dates: start: 20240609, end: 20240613
  34. HERBALS [Concomitant]
     Active Substance: HERBALS
     Route: 042
     Dates: start: 20240514, end: 20240516
  35. MAGNESIUM ISOGLYCYRRHIZINATE [Concomitant]
     Active Substance: MAGNESIUM ISOGLYCYRRHIZINATE
     Route: 042
     Dates: start: 20240522, end: 20240607
  36. MAGNESIUM ISOGLYCYRRHIZINATE [Concomitant]
     Active Substance: MAGNESIUM ISOGLYCYRRHIZINATE
     Route: 042
     Dates: start: 20240822, end: 20240913
  37. tathion injection [Concomitant]
     Route: 042
     Dates: start: 20240522, end: 20240607
  38. Hydroprednisone inj [Concomitant]
     Route: 042
     Dates: start: 20240530, end: 20240607
  39. Hydroprednisone inj [Concomitant]
     Route: 042
     Dates: start: 20240607, end: 20240609
  40. Hydroprednisone inj [Concomitant]
     Route: 042
     Dates: start: 20240522, end: 20240530
  41. POTASSIUM CHLORIDE [Concomitant]
     Active Substance: POTASSIUM CHLORIDE
     Route: 042
     Dates: start: 20240522, end: 20240607
  42. POTASSIUM CHLORIDE [Concomitant]
     Active Substance: POTASSIUM CHLORIDE
     Route: 042
     Dates: start: 20240609, end: 20240617
  43. POTASSIUM CHLORIDE [Concomitant]
     Active Substance: POTASSIUM CHLORIDE
     Route: 042
     Dates: start: 20240810, end: 20240813
  44. POTASSIUM CHLORIDE [Concomitant]
     Active Substance: POTASSIUM CHLORIDE
     Route: 042
     Dates: start: 20240813, end: 20240816
  45. POTASSIUM CHLORIDE [Concomitant]
     Active Substance: POTASSIUM CHLORIDE
     Route: 042
     Dates: start: 20240824, end: 20240828
  46. POTASSIUM CHLORIDE [Concomitant]
     Active Substance: POTASSIUM CHLORIDE
     Route: 042
     Dates: start: 20240914, end: 20240914
  47. Calcium gluconate sodium chloride injection [Concomitant]
     Route: 042
     Dates: start: 20240524, end: 20240607
  48. Calcium gluconate sodium chloride injection [Concomitant]
     Route: 042
     Dates: start: 20240822, end: 20240906
  49. ondansetron hydrochloride injection [Concomitant]
     Route: 042
     Dates: start: 20240531, end: 20240601
  50. ondansetron hydrochloride injection [Concomitant]
     Route: 042
     Dates: start: 20240801, end: 20240806
  51. ondansetron hydrochloride injection [Concomitant]
     Route: 042
     Dates: start: 20240831, end: 20240902
  52. Esomeprazole magnesium enteric capsule [Concomitant]
     Route: 048
     Dates: start: 20240606, end: 20240617
  53. Esomeprazole magnesium enteric capsule [Concomitant]
     Route: 048
     Dates: start: 20240801, end: 20240806
  54. Levofloxacin sodium chloride [Concomitant]
     Route: 042
     Dates: start: 20240608, end: 20240608
  55. Human granulocyte-stimulating factor injection [Concomitant]
     Route: 058
     Dates: start: 20240609, end: 20240617
  56. Human granulocyte-stimulating factor injection [Concomitant]
     Route: 058
     Dates: start: 20240806, end: 20240806
  57. Human granulocyte-stimulating factor injection [Concomitant]
     Route: 058
     Dates: start: 20240810, end: 20240816
  58. Human granulocyte-stimulating factor injection [Concomitant]
     Route: 058
     Dates: start: 20240911, end: 20240915
  59. Human granulocyte-stimulating factor injection [Concomitant]
     Route: 058
     Dates: start: 20240909, end: 20240909
  60. MONTMORILLONITE [Concomitant]
     Active Substance: MONTMORILLONITE
     Route: 048
     Dates: start: 20240609, end: 20240617
  61. injection liquid of gentamicin [Concomitant]
     Route: 048
     Dates: start: 20240609, end: 20240613
  62. AMMONIUM GLYCYRRHIZATE\GLYCINE\RACEMETHIONINE [Concomitant]
     Active Substance: AMMONIUM GLYCYRRHIZATE\GLYCINE\RACEMETHIONINE
     Dosage: 4 CAPSULE
     Route: 048
     Dates: start: 20240613, end: 20240613
  63. AMMONIUM GLYCYRRHIZATE\GLYCINE\RACEMETHIONINE [Concomitant]
     Active Substance: AMMONIUM GLYCYRRHIZATE\GLYCINE\RACEMETHIONINE
     Dosage: 20 CAPSULE
     Route: 048
     Dates: start: 20240812
  64. AMMONIUM GLYCYRRHIZATE\GLYCINE\RACEMETHIONINE [Concomitant]
     Active Substance: AMMONIUM GLYCYRRHIZATE\GLYCINE\RACEMETHIONINE
     Dosage: 3CAPSULE
     Route: 048
     Dates: start: 20240913, end: 20240924
  65. Fluconazole sodium chloride injection [Concomitant]
     Route: 042
     Dates: start: 20240613, end: 20240617
  66. Multivitamins for injection (12) [Concomitant]
     Route: 042
     Dates: start: 20240526, end: 20240628
  67. DEXAMETHASONE SODIUM PHOSPHATE [Concomitant]
     Active Substance: DEXAMETHASONE SODIUM PHOSPHATE
     Route: 042
     Dates: start: 20240731, end: 20240731
  68. DEXAMETHASONE SODIUM PHOSPHATE [Concomitant]
     Active Substance: DEXAMETHASONE SODIUM PHOSPHATE
     Route: 042
     Dates: start: 20240801, end: 20240806
  69. DEXAMETHASONE SODIUM PHOSPHATE [Concomitant]
     Active Substance: DEXAMETHASONE SODIUM PHOSPHATE
     Route: 042
     Dates: start: 20240731, end: 20240731
  70. DEXAMETHASONE SODIUM PHOSPHATE [Concomitant]
     Active Substance: DEXAMETHASONE SODIUM PHOSPHATE
     Route: 042
     Dates: start: 20240830, end: 20240830
  71. diphenhydramine hydrochloride inj [Concomitant]
     Route: 042
     Dates: start: 20240731, end: 20240731
  72. diphenhydramine hydrochloride inj [Concomitant]
     Route: 042
     Dates: start: 20240830, end: 20240830
  73. CEFOPERAZONE SODIUM\SULBACTAM SODIUM [Concomitant]
     Active Substance: CEFOPERAZONE SODIUM\SULBACTAM SODIUM
     Route: 042
     Dates: start: 20240810, end: 20240816
  74. CEFOPERAZONE SODIUM\SULBACTAM SODIUM [Concomitant]
     Active Substance: CEFOPERAZONE SODIUM\SULBACTAM SODIUM
     Route: 042
     Dates: start: 20240810, end: 20240816
  75. CEFOPERAZONE SODIUM\SULBACTAM SODIUM [Concomitant]
     Active Substance: CEFOPERAZONE SODIUM\SULBACTAM SODIUM
     Route: 042
     Dates: start: 20240916, end: 20240918
  76. CEFOPERAZONE SODIUM\SULBACTAM SODIUM [Concomitant]
     Active Substance: CEFOPERAZONE SODIUM\SULBACTAM SODIUM
     Route: 042
     Dates: start: 20240918, end: 20240924
  77. Deoxynucleotide sodium injection [Concomitant]
     Route: 042
     Dates: start: 20240821
  78. Deoxynucleotide sodium injection [Concomitant]
     Route: 042
     Dates: start: 20240821, end: 20240821
  79. Furosemide sodium chloride inj [Concomitant]
     Route: 042
     Dates: start: 20240827, end: 20240827
  80. Furosemide sodium chloride inj [Concomitant]
     Route: 042
     Dates: start: 20240827, end: 20240827
  81. Hepatocyte growth hormone enteric-coated capsules [Concomitant]
     Route: 042
     Dates: start: 20240904, end: 20240924

REACTIONS (4)
  - Myelosuppression [Recovered/Resolved]
  - Sepsis [Recovered/Resolved]
  - Upper respiratory tract infection [Recovered/Resolved]
  - Febrile neutropenia [Recovered/Resolved]

NARRATIVE: CASE EVENT DATE: 20240607
